FAERS Safety Report 5215310-8 (Version None)
Quarter: 2006Q4

REPORT INFORMATION
  Report Type: 
  Country: None (occurrence: None)
  Receive Date: 20061122
  Receipt Date: 20060128
  Transmission Date: 20070319
  Serious: Yes (Other)
  Sender: FDA-Public Use
  Company Number: 2005172550

PATIENT
  Sex: Female
  Weight: 58.9676 kg

DRUGS (8)
  1. LIPITOR [Suspect]
     Indication: BLOOD CHOLESTEROL INCREASED
     Dosage: 20 MG (20 MG, 1 IN 1 D), ORAL
     Route: 048
  2. ZYRTEC [Concomitant]
  3. ARICEPT [Concomitant]
  4. ATENOLOL [Concomitant]
  5. ISOSORBIDE (ISOSORBIDE) [Concomitant]
  6. SYNTHROID [Concomitant]
  7. ASPIRIN [Concomitant]
  8. ALL OTHER THERAPEUTIC PRODUCTS (ALL OTHER THERAPEUTIC PRODUCTS) [Concomitant]

REACTIONS (2)
  - ARRHYTHMIA [None]
  - BLOOD CHOLESTEROL INCREASED [None]
